FAERS Safety Report 12084660 (Version 3)
Quarter: 2016Q2

REPORT INFORMATION
  Report Type: Spontaneous
  Country: JP (occurrence: JP)
  Receive Date: 20160217
  Receipt Date: 20160405
  Transmission Date: 20160815
  Serious: Yes (Death, Other)
  Sender: FDA-Public Use
  Company Number: JP-SA-2016SA028629

PATIENT
  Age: 70 Year
  Sex: Male
  Weight: 42 kg

DRUGS (15)
  1. ELPLAT [Suspect]
     Active Substance: OXALIPLATIN
     Indication: COLON CANCER
     Dosage: INJECTION
     Route: 041
     Dates: start: 20140812, end: 20140812
  2. ELPLAT [Suspect]
     Active Substance: OXALIPLATIN
     Indication: COLON CANCER
     Dosage: INJECTION
     Route: 041
     Dates: start: 20140624, end: 20140624
  3. ALOXI [Concomitant]
     Active Substance: PALONOSETRON HYDROCHLORIDE
     Dates: start: 20140325, end: 20141021
  4. FUNGUARD [Concomitant]
     Active Substance: MICAFUNGIN SODIUM
     Dates: start: 20141027
  5. ELPLAT [Suspect]
     Active Substance: OXALIPLATIN
     Indication: COLON CANCER
     Dosage: INJECTION
     Route: 041
     Dates: start: 20141021, end: 20141021
  6. ZITHROMAC [Concomitant]
     Active Substance: AZITHROMYCIN DIHYDRATE
     Dates: start: 20141104, end: 20141109
  7. ELPLAT [Suspect]
     Active Substance: OXALIPLATIN
     Indication: COLON CANCER
     Dosage: INJECTION
     Route: 041
     Dates: start: 20140722, end: 20140722
  8. ELPLAT [Suspect]
     Active Substance: OXALIPLATIN
     Indication: COLON CANCER
     Dosage: INJECTION
     Route: 041
     Dates: start: 20140603, end: 20140603
  9. XELODA [Concomitant]
     Active Substance: CAPECITABINE
     Dates: start: 20140325, end: 20141021
  10. METHYLPREDNISOLONE SODIUM SUCCINATE. [Concomitant]
     Active Substance: METHYLPREDNISOLONE SODIUM SUCCINATE
     Dates: start: 20141108, end: 20141114
  11. ELPLAT [Suspect]
     Active Substance: OXALIPLATIN
     Indication: COLON CANCER
     Dosage: INJECTION
     Route: 041
     Dates: start: 20140422, end: 20140422
  12. ELPLAT [Suspect]
     Active Substance: OXALIPLATIN
     Indication: COLON CANCER
     Dosage: INJECTION
     Route: 041
     Dates: start: 20140902, end: 20140902
  13. ELPLAT [Suspect]
     Active Substance: OXALIPLATIN
     Indication: COLON CANCER
     Dosage: INJECTION
     Route: 041
     Dates: start: 20140930, end: 20140930
  14. ELPLAT [Suspect]
     Active Substance: OXALIPLATIN
     Indication: COLON CANCER
     Dosage: INJECTION
     Route: 041
     Dates: start: 20140325, end: 20140325
  15. ZOSYN [Concomitant]
     Active Substance: PIPERACILLIN SODIUM\TAZOBACTAM SODIUM
     Dates: start: 20141022

REACTIONS (3)
  - Cardiac arrest [Unknown]
  - Pathogen resistance [Unknown]
  - Interstitial lung disease [Fatal]

NARRATIVE: CASE EVENT DATE: 20141022
